FAERS Safety Report 11883591 (Version 2)
Quarter: 2016Q1

REPORT INFORMATION
  Report Type: Report from Study
  Country: US (occurrence: US)
  Receive Date: 20160101
  Receipt Date: 20160212
  Transmission Date: 20160526
  Serious: Yes (Disabling, Other)
  Sender: FDA-Public Use
  Company Number: US-AMGEN-USASL2015139660

PATIENT
  Age: 62 Year
  Sex: Male

DRUGS (2)
  1. ENBREL [Suspect]
     Active Substance: ETANERCEPT
     Indication: PSORIATIC ARTHROPATHY
  2. ENBREL [Suspect]
     Active Substance: ETANERCEPT
     Indication: RHEUMATOID ARTHRITIS
     Dosage: 50 MG, QWK
     Route: 065
     Dates: start: 2010

REACTIONS (7)
  - Disability [Unknown]
  - Injection site pain [Unknown]
  - Mobility decreased [Unknown]
  - Arthralgia [Unknown]
  - Drug dose omission [Unknown]
  - Limb discomfort [Unknown]
  - Device issue [Unknown]

NARRATIVE: CASE EVENT DATE: 2013
